FAERS Safety Report 5835039-2 (Version None)
Quarter: 2008Q3

REPORT INFORMATION
  Report Type: 
  Country: None (occurrence: None)
  Receive Date: 20080804
  Receipt Date: 20080722
  Transmission Date: 20090109
  Serious: Yes (Hospitalization)
  Sender: FDA-Public Use
  Company Number: 2007-00570

PATIENT
  Age: 52 Year
  Sex: Male
  Weight: 72 kg

DRUGS (9)
  1. VELCADE [Suspect]
     Indication: T-CELL LYMPHOMA
     Dosage: 2.90 MG, INTRAVENOUS
     Route: 042
     Dates: start: 20070122, end: 20070223
  2. DOXORUBICIN HCL [Suspect]
     Indication: T-CELL LYMPHOMA
     Dosage: 144.00 MG, INTRAVENOUS
     Route: 042
     Dates: start: 20070122, end: 20070219
  3. CYCLOPHOSPHAMIDE [Suspect]
     Indication: T-CELL LYMPHOMA
     Dosage: 2300.00 MG, INTRAVENOUS
     Route: 042
     Dates: start: 20070122, end: 20070219
  4. ELDISINE [Suspect]
     Indication: T-CELL LYMPHOMA
     Dosage: 3.80 MG, INTRAVENOUS
     Route: 042
     Dates: start: 20000122, end: 20070223
  5. BLEOMYCIN SULFATE [Suspect]
     Indication: T-CELL LYMPHOMA
     Dosage: 10.00 MG, INTRAVENOUS
     Route: 042
     Dates: start: 20070122, end: 20070223
  6. METHOTREXATE [Suspect]
     Indication: T-CELL LYMPHOMA
     Dosage: 15.00 MG, INTRATHECAL
     Route: 037
     Dates: start: 20070122, end: 20070219
  7. SOLU-MEDROL [Suspect]
     Indication: T-CELL LYMPHOMA
     Dosage: 115.00 MG, INTRAVENOUS
     Route: 042
     Dates: start: 20070122, end: 20070223
  8. PREDNISONE TAB [Suspect]
     Indication: T-CELL LYMPHOMA
     Dosage: 115.00 MG, ORAL
     Route: 048
     Dates: start: 20070123, end: 20070222
  9. GRANOCYTE 13-34(LENOGRASTIM) INJECTION, 150 MG/M2 [Suspect]
     Indication: T-CELL LYMPHOMA
     Dosage: 988.00, SUBCUTANEOUS
     Route: 058
     Dates: start: 20070126, end: 20070301

REACTIONS (7)
  - CAECITIS [None]
  - DYSPNOEA [None]
  - ENTEROCOLITIS [None]
  - FEBRILE NEUTROPENIA [None]
  - ILEUS PARALYTIC [None]
  - ORAL DISORDER [None]
  - TACHYCARDIA [None]
